FAERS Safety Report 10685805 (Version 2)
Quarter: 2015Q1

REPORT INFORMATION
  Report Type: Spontaneous
  Country: FR (occurrence: FR)
  Receive Date: 20141231
  Receipt Date: 20150108
  Transmission Date: 20150720
  Serious: Yes (Disabling, Other)
  Sender: FDA-Public Use
  Company Number: FR-OTSUKA-US-2014-14678

PATIENT

DRUGS (1)
  1. DACOGEN [Suspect]
     Active Substance: DECITABINE
     Indication: MYELODYSPLASTIC SYNDROME
     Dosage: UNK UNK, UNKNOWN
     Route: 042

REACTIONS (8)
  - Confusional state [Unknown]
  - Mental impairment [Unknown]
  - Disorientation [Unknown]
  - Fall [Unknown]
  - Disability [Unknown]
  - Weight decreased [Unknown]
  - Blast cells present [Unknown]
  - Somnolence [Unknown]
